FAERS Safety Report 9512964 (Version 1)
Quarter: 2013Q3

REPORT INFORMATION
  Report Type: Spontaneous
  Country: FR (occurrence: FR)
  Receive Date: 20130910
  Receipt Date: 20130910
  Transmission Date: 20140515
  Serious: Yes (Hospitalization)
  Sender: FDA-Public Use
  Company Number: FR-UCBSA-096528

PATIENT
  Age: 52 Year
  Sex: Female

DRUGS (3)
  1. KEPPRA [Suspect]
     Indication: EPILEPSY
     Dosage: DOSE STRENGTH: 500 MG (DAILY DOSE: 1500 MG)
     Route: 048
     Dates: start: 2010, end: 20130218
  2. BACTRIM FORTE [Suspect]
     Dosage: 1 DF DAILY (UNKNOWN DOSE)
     Route: 048
     Dates: start: 20121130, end: 20130218
  3. TEMODAL [Suspect]
     Indication: ANAPLASTIC ASTROCYTOMA
     Route: 048
     Dates: start: 20121130, end: 20130218

REACTIONS (1)
  - Pancytopenia [Not Recovered/Not Resolved]
